FAERS Safety Report 8914207 (Version 1)
Quarter: 2012Q4

REPORT INFORMATION
  Report Type: 
  Country: JP (occurrence: JP)
  Receive Date: 20121119
  Receipt Date: 20121119
  Transmission Date: 20130627
  Serious: Yes (Other)
  Sender: FDA-Public Use
  Company Number: JP-009507513-1211JPN006517

PATIENT
  Age: 72 Year
  Sex: Female

DRUGS (4)
  1. BONALON [Suspect]
     Indication: OSTEOPOROSIS
     Dosage: UNK
     Route: 048
     Dates: end: 20091202
  2. PLATIBIT [Concomitant]
     Indication: HYPERTENSION
     Dosage: UNK
     Route: 048
  3. ASTOS CA [Concomitant]
     Indication: HYPERTENSION
     Dosage: UNK
     Route: 048
  4. EPEL [Concomitant]
     Indication: BACK PAIN
     Dosage: UNK
     Route: 048

REACTIONS (1)
  - Osteomyelitis [Recovering/Resolving]
